FAERS Safety Report 5876158-4 (Version None)
Quarter: 2008Q3

REPORT INFORMATION
  Report Type: 
  Country: None (occurrence: None)
  Receive Date: 20080909
  Receipt Date: 20080909
  Transmission Date: 20090109
  Serious: Yes (Other)
  Sender: FDA-Public Use
  Company Number: None

PATIENT
  Age: 55 Year
  Sex: Female
  Weight: 63.5036 kg

DRUGS (1)
  1. LEVAQUIN [Suspect]
     Indication: CYSTITIS
     Dosage: 1 500 MG TABLET DAILY PO
     Route: 048
     Dates: start: 20080312, end: 20080318

REACTIONS (5)
  - EPICONDYLITIS [None]
  - GAIT DISTURBANCE [None]
  - JOINT DISLOCATION [None]
  - MUSCULOSKELETAL PAIN [None]
  - TENDONITIS [None]
